FAERS Safety Report 8580380-6 (Version None)
Quarter: 2012Q3

REPORT INFORMATION
  Report Type: 
  Country: None (occurrence: None)
  Receive Date: 20120808
  Receipt Date: 20120801
  Transmission Date: 20120928
  Serious: Yes (Hospitalization)
  Sender: FDA-Public Use
  Company Number: US-US-EMD SERONO, INC.-7053492

PATIENT
  Sex: Female

DRUGS (5)
  1. MULTI-VITAMIN [Concomitant]
     Indication: PRODUCT USED FOR UNKNOWN INDICATION
  2. FLUTICASONE PROPIONATE [Concomitant]
     Indication: ASTHMA
  3. PEPCID [Concomitant]
     Indication: GASTROOESOPHAGEAL REFLUX DISEASE
  4. CALCIUM [Concomitant]
     Indication: OSTEOPENIA
  5. REBIF [Suspect]
     Indication: MULTIPLE SCLEROSIS
     Dates: start: 20060101

REACTIONS (2)
  - PNEUMOTHORAX [None]
  - PULMONARY EOSINOPHILIA [None]
